FAERS Safety Report 4379707-0 (Version None)
Quarter: 2004Q2

REPORT INFORMATION
  Report Type: 
  Country: None (occurrence: None)
  Receive Date: 20040614
  Receipt Date: 20040527
  Transmission Date: 20050107
  Serious: Yes (Hospitalization)
  Sender: FDA-Public Use
  Company Number: MPS1-10231

PATIENT
  Age: 11 Month
  Sex: Male
  Weight: 9.9 kg

DRUGS (1)
  1. ALDURAZYME [Suspect]
     Indication: MUCOPOLYSACCHARIDOSIS IH
     Dosage: 0.58 MG/ KG QWK IV
     Route: 042
     Dates: start: 20031201, end: 20040512

REACTIONS (3)
  - CATHETER RELATED COMPLICATION [None]
  - CATHETER SITE INFECTION [None]
  - CULTURE POSITIVE [None]
